FAERS Safety Report 6532114-4 (Version None)
Quarter: 2009Q4

REPORT INFORMATION
  Report Type: 
  Country: None (occurrence: None)
  Receive Date: 20091228
  Receipt Date: 20090929
  Transmission Date: 20100525
  Serious: Yes (Hospitalization, Other)
  Sender: FDA-Public Use
  Company Number: 20090441

PATIENT
  Age: 26 Year
  Sex: Female

DRUGS (1)
  1. VENOFER [Suspect]
     Indication: IRON DEFICIENCY ANAEMIA
     Dosage: 750 MG OVER 8 MINUTES 20 MG/ML INTRAVENOUS
     Route: 042
     Dates: start: 20090915, end: 20090915

REACTIONS (1)
  - HYPERSENSITIVITY [None]
